FAERS Safety Report 5627572-3 (Version None)
Quarter: 2008Q1

REPORT INFORMATION
  Report Type: 
  Country: None (occurrence: None)
  Receive Date: 20080215
  Receipt Date: 20080111
  Transmission Date: 20080703
  Serious: No
  Sender: FDA-Public Use
  Company Number: A0702765A

PATIENT
  Age: 77 Year
  Sex: Male

DRUGS (9)
  1. COREG CR [Suspect]
     Indication: HYPERTENSION
     Dosage: 10MG PER DAY
     Route: 048
     Dates: start: 20071110, end: 20080107
  2. MICARDIS [Concomitant]
  3. VALIUM [Concomitant]
  4. ASPIRIN [Concomitant]
  5. AMBIEN [Concomitant]
  6. VITAMINS [Concomitant]
  7. VITAMIN E [Concomitant]
  8. ASCORBIC ACID [Concomitant]
  9. VITAMIN B COMPLEX CAP [Concomitant]

REACTIONS (4)
  - AFFECT LABILITY [None]
  - ANXIETY [None]
  - FEELING ABNORMAL [None]
  - VISUAL DISTURBANCE [None]
